FAERS Safety Report 11715431 (Version 5)
Quarter: 2016Q1

REPORT INFORMATION
  Report Type: Report from Study
  Country: NL (occurrence: NL)
  Receive Date: 20151109
  Receipt Date: 20160202
  Transmission Date: 20160525
  Serious: Yes (Hospitalization, Disabling, Other)
  Sender: FDA-Public Use
  Company Number: PHHY2015NL143427

PATIENT
  Age: 83 Year
  Sex: Male

DRUGS (2)
  1. ZOMETA [Suspect]
     Active Substance: ZOLEDRONIC ACID
     Indication: HORMONE-DEPENDENT PROSTATE CANCER
     Dosage: 4 MG PER 100 ML (ONCE EVERY 6 WEEKS)
     Route: 042
  2. ZOMETA [Suspect]
     Active Substance: ZOLEDRONIC ACID
     Indication: PROSTATE CANCER METASTATIC
     Dosage: 4 MG (ONCE PER 4 TO 6 WEEKS)
     Route: 042
     Dates: start: 201401

REACTIONS (8)
  - Terminal state [Unknown]
  - Malignant neoplasm progression [Not Recovered/Not Resolved]
  - Gastrointestinal neoplasm [Unknown]
  - Colon cancer [Not Recovered/Not Resolved]
  - Inappropriate schedule of drug administration [Unknown]
  - Malaise [Unknown]
  - Prostate cancer metastatic [Not Recovered/Not Resolved]
  - Intestinal haemorrhage [Not Recovered/Not Resolved]

NARRATIVE: CASE EVENT DATE: 20151029
